FAERS Safety Report 4319411-8 (Version None)
Quarter: 2004Q1

REPORT INFORMATION
  Report Type: 
  Country: None (occurrence: None)
  Receive Date: 20040318
  Receipt Date: 20040318
  Transmission Date: 20041129
  Serious: Yes (Other)
  Sender: FDA-Public Use
  Company Number: None

PATIENT
  Age: 50 Year
  Sex: Female
  Weight: 74.8435 kg

DRUGS (1)
  1. BETASERON [Suspect]

REACTIONS (3)
  - CONTUSION [None]
  - INJECTION SITE REACTION [None]
  - MEDICAL DEVICE COMPLICATION [None]
